FAERS Safety Report 16255634 (Version 1)
Quarter: 2019Q2

REPORT INFORMATION
  Report Type: Spontaneous
  Country: US (occurrence: US)
  Receive Date: 20190429
  Receipt Date: 20190429
  Transmission Date: 20190711
  Serious: No
  Sender: FDA-Public Use
  Company Number: None

PATIENT
  Age: 61 Year
  Sex: Male
  Weight: 81 kg

DRUGS (7)
  1. BACLOFEN. [Concomitant]
     Active Substance: BACLOFEN
  2. ASPIRIN. [Concomitant]
     Active Substance: ASPIRIN
  3. XTAMPZA ER [Suspect]
     Active Substance: OXYCODONE
     Indication: PAIN
     Dosage: ?          QUANTITY:1 CAPSULE(S);?
     Route: 048
     Dates: start: 20190213, end: 20190223
  4. VALIUM [Concomitant]
     Active Substance: DIAZEPAM
  5. OXYCODONE [Concomitant]
     Active Substance: OXYCODONE
  6. MORPHINE SULFATE. [Concomitant]
     Active Substance: MORPHINE SULFATE
  7. VITAMINS [Concomitant]
     Active Substance: VITAMINS

REACTIONS (6)
  - Urinary sediment [None]
  - Device occlusion [None]
  - Product solubility abnormal [None]
  - Product substitution issue [None]
  - Insurance issue [None]
  - Product complaint [None]

NARRATIVE: CASE EVENT DATE: 20190213
